FAERS Safety Report 8894189 (Version 3)
Quarter: 2013Q1

REPORT INFORMATION
  Report Type: Spontaneous
  Country: IT (occurrence: IT)
  Receive Date: 20121108
  Receipt Date: 20130122
  Transmission Date: 20140127
  Serious: Yes (Hospitalization)
  Sender: FDA-Public Use
  Company Number: IT-PFIZER INC-2012279327

PATIENT
  Age: 52 Year
  Sex: Male

DRUGS (3)
  1. XANAX [Suspect]
     Dosage: 1.25 MG, TOTAL DOSE, SINGLE
     Route: 048
     Dates: start: 20120927, end: 20120927
  2. RIVOTRIL [Suspect]
     Dosage: 25 MG, TOTAL DOSE, SINGLE
     Route: 048
     Dates: start: 20120927, end: 20120927
  3. AMOXICILLIN TRIHYDRATE [Suspect]
     Dosage: 4 G, TOTAL DOSE, SINGLE
     Route: 048
     Dates: start: 20120927, end: 20120927

REACTIONS (2)
  - Sopor [Unknown]
  - Intentional self-injury [Unknown]
